FAERS Safety Report 9146960 (Version 9)
Quarter: 2014Q2

REPORT INFORMATION
  Report Type: Report from Study
  Country: US (occurrence: US)
  Receive Date: 20130307
  Receipt Date: 20140421
  Transmission Date: 20141212
  Serious: Yes (Other)
  Sender: FDA-Public Use
  Company Number: PHEH2013US005244

PATIENT
  Sex: Female

DRUGS (4)
  1. ILARIS [Suspect]
     Dosage: 600 MG, UNK
  2. ILARIS [Suspect]
     Dosage: UNK
     Dates: start: 20130517
  3. ILARIS [Suspect]
     Dosage: UNK
     Dates: start: 20130718
  4. AMITRIPTYLINE [Concomitant]
     Dosage: 10 MG, QD
     Route: 048

REACTIONS (23)
  - Abortion spontaneous [Unknown]
  - Vaginal haemorrhage [Unknown]
  - Abdominal pain [Unknown]
  - Abdominal pain upper [Unknown]
  - Pain [Unknown]
  - Convulsion [Unknown]
  - Weight decreased [Unknown]
  - Joint stiffness [Unknown]
  - Pain in extremity [Unknown]
  - Arthralgia [Unknown]
  - Joint range of motion decreased [Unknown]
  - Inflammation [Unknown]
  - Abdominal discomfort [Unknown]
  - Gait disturbance [Unknown]
  - Balance disorder [Unknown]
  - Pyrexia [Unknown]
  - Asthenia [Unknown]
  - Nausea [Unknown]
  - Rash [Unknown]
  - Dizziness [Unknown]
  - Maternal exposure during pregnancy [Unknown]
  - Musculoskeletal stiffness [Unknown]
  - Erythema [Unknown]
